FAERS Safety Report 9160635 (Version 2)
Quarter: 2013Q1

REPORT INFORMATION
  Report Type: Spontaneous
  Country: CA (occurrence: None)
  Receive Date: 20130219
  Receipt Date: 20130319
  Transmission Date: 20140127
  Serious: Yes (Other)
  Sender: FDA-Public Use
  Company Number: 2013-0705

PATIENT
  Age: 35 Year
  Sex: Female

DRUGS (1)
  1. SOMATULINE [Suspect]
     Indication: PRODUCT USED FOR UNKNOWN INDICATION
     Dosage: 90 MG (90 MG, 1 IN 28 D), SUBCUTANEOUS
     Route: 058
     Dates: start: 20121209

REACTIONS (8)
  - Pyelonephritis [None]
  - Injection site pain [None]
  - Nasal congestion [None]
  - Skin warm [None]
  - Diarrhoea [None]
  - Abdominal pain [None]
  - Flatulence [None]
  - Sinusitis [None]
